FAERS Safety Report 11801176 (Version 2)
Quarter: 2015Q4

REPORT INFORMATION
  Report Type: Spontaneous
  Country: RU (occurrence: RU)
  Receive Date: 20151204
  Receipt Date: 20151231
  Transmission Date: 20160305
  Serious: Yes (Other)
  Sender: FDA-Public Use
  Company Number: RU-BAYER-2015-476281

PATIENT
  Age: 24 Year
  Sex: Female
  Weight: 71 kg

DRUGS (1)
  1. DROSPIRENONE + ETHINYLESTRADIOL 30?G [Suspect]
     Active Substance: DROSPIRENONE\ETHINYL ESTRADIOL
     Indication: MENSTRUAL CYCLE MANAGEMENT
     Dosage: UNK
     Route: 048
     Dates: start: 2012

REACTIONS (8)
  - Cholecystitis chronic [None]
  - Cholelithiasis [None]
  - Appendicectomy [None]
  - Dysgeusia [None]
  - Flatulence [None]
  - Nausea [None]
  - Abdominal distension [None]
  - Abdominal pain upper [None]

NARRATIVE: CASE EVENT DATE: 201407
